FAERS Safety Report 10663735 (Version 3)
Quarter: 2019Q2

REPORT INFORMATION
  Report Type: Spontaneous
  Country: FR (occurrence: FR)
  Receive Date: 20141219
  Receipt Date: 20190403
  Transmission Date: 20190711
  Serious: Yes (Hospitalization, Other)
  Sender: FDA-Public Use
  Company Number: FR-PFIZER INC-2014347724

PATIENT
  Age: 46 Year
  Sex: Male
  Weight: 78 kg

DRUGS (6)
  1. LOVENOX [Suspect]
     Active Substance: ENOXAPARIN SODIUM
     Dosage: 4000 IU, DAILY
     Route: 058
     Dates: start: 20140822, end: 20140903
  2. EUPANTOL [Suspect]
     Active Substance: PANTOPRAZOLE SODIUM
     Dosage: 1 DF, DAILY
     Route: 065
     Dates: start: 20140822, end: 20140903
  3. CEFOTAXIME [Suspect]
     Active Substance: CEFOTAXIME SODIUM
     Indication: LUNG DISORDER
     Dosage: 6 G, DAILY
     Route: 042
     Dates: start: 20140823, end: 20140830
  4. LEVOFLOXACIN. [Concomitant]
     Active Substance: LEVOFLOXACIN
     Dosage: UNK
     Dates: start: 20140823, end: 20140825
  5. ALPRAZOLAM. [Suspect]
     Active Substance: ALPRAZOLAM
     Dosage: 0.5 MG, DAILY
     Route: 048
     Dates: start: 20140823, end: 20140903
  6. CEFOXITIN SODIUM [Suspect]
     Active Substance: CEFOXITIN SODIUM
     Indication: LUNG DISORDER
     Dosage: 2 G, DAILY
     Route: 042
     Dates: start: 20140829, end: 20140830

REACTIONS (4)
  - Rash [Recovering/Resolving]
  - Drug reaction with eosinophilia and systemic symptoms [Unknown]
  - Eosinophilia [Unknown]
  - Hyperthermia [Unknown]

NARRATIVE: CASE EVENT DATE: 20140830
